FAERS Safety Report 4993237-4 (Version None)
Quarter: 2006Q1

REPORT INFORMATION
  Report Type: 
  Country: None (occurrence: None)
  Receive Date: 20060314
  Receipt Date: 20050207
  Transmission Date: 20060701
  Serious: Yes (Life-Threatening, Hospitalization, Other)
  Sender: FDA-Public Use
  Company Number: 200510574BCC

PATIENT
  Age: 57 Year
  Sex: Female
  Weight: 61.2356 kg

DRUGS (6)
  1. ALEVE [Suspect]
     Indication: HEADACHE
     Dosage: SEE IMAGE
     Route: 048
  2. ALEVE [Suspect]
     Indication: HEADACHE
     Dosage: SEE IMAGE
     Route: 048
     Dates: start: 20050128
  3. ZOLOFT [Concomitant]
  4. LIPITOR [Concomitant]
  5. GLYBURIDE [Concomitant]
  6. NEURONTIN [Concomitant]

REACTIONS (7)
  - BLOOD PRESSURE DECREASED [None]
  - BLOOD PRESSURE INCREASED [None]
  - DIFFICULTY IN WALKING [None]
  - DIZZINESS [None]
  - DYSPNOEA [None]
  - HYPERSENSITIVITY [None]
  - TREMOR [None]
